FAERS Safety Report 5823196-3 (Version None)
Quarter: 2008Q3

REPORT INFORMATION
  Report Type: 
  Country: None (occurrence: None)
  Receive Date: 20080725
  Receipt Date: 20080718
  Transmission Date: 20090109
  Serious: Yes (Hospitalization, Other)
  Sender: FDA-Public Use
  Company Number: PHHY2008JP08417

PATIENT
  Age: 78 Year
  Sex: Female

DRUGS (3)
  1. DIOVAN [Suspect]
     Indication: HYPERTENSION
     Dosage: 80 MG DAILY
     Route: 048
  2. LASIX [Suspect]
     Dosage: 20 MG
     Route: 048
  3. ALDACTONE [Suspect]
     Dosage: 25 MG
     Route: 048
     Dates: end: 20080530

REACTIONS (1)
  - HYPONATRAEMIA [None]
